FAERS Safety Report 8321246-6 (Version None)
Quarter: 2012Q2

REPORT INFORMATION
  Report Type: 
  Country: None (occurrence: None)
  Receive Date: 20120430
  Receipt Date: 20120418
  Transmission Date: 20120825
  Serious: Yes (Hospitalization)
  Sender: FDA-Public Use
  Company Number: US-BRISTOL-MYERS SQUIBB COMPANY-16547804

PATIENT
  Age: 57 Year
  Sex: Male
  Weight: 62 kg

DRUGS (25)
  1. CARBOPLATIN [Suspect]
     Indication: HEAD AND NECK CANCER
     Dosage: 1 DF= 5AUC. LAST DOSE PRIOR TO EVENT: 2APR12 4TH INF
     Dates: start: 20120130
  2. CLINDAMYCIN [Concomitant]
     Dates: start: 20120213
  3. MIRTAZAPINE [Concomitant]
     Dates: start: 20120220
  4. MIRALAX [Concomitant]
     Dates: start: 20111122
  5. ZOLPIDEM [Concomitant]
     Dates: start: 20111106
  6. ERBITUX [Suspect]
     Indication: HEAD AND NECK CANCER
     Dosage: LAST DOSE PRIOR TO EVENT: 9APR12 11TH INF. SCEDULED 16APR12 HELD AND PLANNED ON 17APR12
     Route: 042
     Dates: start: 20120130
  7. OXYCODONE HCL [Concomitant]
     Dates: start: 20111116
  8. FENTANYL-100 [Concomitant]
     Dates: start: 20120323
  9. NOVOLIN R [Concomitant]
     Dates: start: 20110711
  10. NEXIUM [Concomitant]
     Dates: start: 20120318
  11. PERCOCET [Concomitant]
     Dates: start: 20120211
  12. MORPHINE [Concomitant]
     Dates: start: 20120321
  13. VITAMIN C [Concomitant]
     Dates: start: 20110911
  14. TYLENOL (CAPLET) [Concomitant]
     Dates: start: 20110311
  15. SENNOSIDE A+B [Concomitant]
     Dates: start: 20110711
  16. CLOTRIMAZOLE [Concomitant]
     Dates: start: 20111028
  17. FLUCONAZOLE [Concomitant]
     Dates: start: 20120202
  18. POTASSIUM CHLORIDE [Concomitant]
     Dates: start: 20120213
  19. BENADRYL [Concomitant]
     Dates: start: 20120221
  20. FLUOROURACIL [Suspect]
     Indication: HEAD AND NECK CANCER
     Dosage: LAST DOSE PRIOR TO EVENT: 2APR12 4TH INF
     Route: 065
     Dates: start: 20120130
  21. CLOTRIMAZOLE [Concomitant]
     Dates: start: 20111028
  22. LEVOFLOXACIN [Concomitant]
     Dates: start: 20120323
  23. MAGNESIUM HYDROXIDE TAB [Concomitant]
     Dates: start: 20120409
  24. COLACE [Concomitant]
     Dates: start: 20110711
  25. NEXIUM [Concomitant]
     Dates: start: 20120318

REACTIONS (1)
  - PLEURAL EFFUSION [None]
